FAERS Safety Report 25623790 (Version 1)
Quarter: 2025Q3

REPORT INFORMATION
  Report Type: Other
  Country: CN (occurrence: CN)
  Receive Date: 20250730
  Receipt Date: 20250730
  Transmission Date: 20251021
  Serious: Yes (Hospitalization)
  Sender: INCYTE
  Company Number: CN-002147023-NVSC2025CN119965

PATIENT
  Age: 63 Year

DRUGS (1)
  1. RUXOLITINIB [Suspect]
     Active Substance: RUXOLITINIB
     Indication: Primary myelofibrosis
     Dosage: 20 MG, BID

REACTIONS (2)
  - Asthenia [Unknown]
  - Blood triglycerides increased [Recovering/Resolving]
